FAERS Safety Report 13854492 (Version 1)
Quarter: 2017Q3

REPORT INFORMATION
  Report Type: Spontaneous
  Country: US (occurrence: US)
  Receive Date: 20170810
  Receipt Date: 20170810
  Transmission Date: 20171127
  Serious: Yes (Death, Hospitalization)
  Sender: FDA-Public Use
  Company Number: None

PATIENT
  Age: 3 Year
  Sex: Male
  Weight: 14.6 kg

DRUGS (17)
  1. CYCLOPHOSPHAMIDE. [Suspect]
     Active Substance: CYCLOPHOSPHAMIDE
     Dates: end: 20121006
  2. ETOPOSIDE (VP-16) [Suspect]
     Active Substance: ETOPOSIDE
     Dates: end: 20121007
  3. G-CSF (FILGRASTIM, AMGEN) [Suspect]
     Active Substance: FILGRASTIM
     Dates: end: 20121102
  4. VINCRISTINE SULFATE. [Suspect]
     Active Substance: VINCRISTINE SULFATE
     Dates: end: 20121021
  5. CLOBAZAM [Concomitant]
     Active Substance: CLOBAZAM
  6. DIPHENHYDRAMINE. [Concomitant]
     Active Substance: DIPHENHYDRAMINE
  7. LORAZEPAM. [Concomitant]
     Active Substance: LORAZEPAM
  8. POLYTHYLENE 3350 [Concomitant]
  9. METOCLOPRAMIDE. [Concomitant]
     Active Substance: METOCLOPRAMIDE
  10. PHENYTOIN. [Concomitant]
     Active Substance: PHENYTOIN
  11. RANITIDINE. [Concomitant]
     Active Substance: RANITIDINE
  12. COTRIMOXAZOLE [Concomitant]
     Active Substance: SULFAMETHOXAZOLE\TRIMETHOPRIM
  13. CISPLATIN. [Suspect]
     Active Substance: CISPLATIN
     Dates: end: 20121007
  14. MESNA. [Suspect]
     Active Substance: MESNA
     Dates: end: 20121006
  15. DEXAMETHASONE. [Concomitant]
     Active Substance: DEXAMETHASONE
  16. NYSTATIN. [Concomitant]
     Active Substance: NYSTATIN
  17. PANTAPRAZOLE [Concomitant]
     Active Substance: PANTOPRAZOLE SODIUM

REACTIONS (5)
  - Malignant neoplasm progression [None]
  - Respiratory disorder [None]
  - Hyponatraemia [None]
  - Seizure [None]
  - Depressed level of consciousness [None]

NARRATIVE: CASE EVENT DATE: 20121103
